FAERS Safety Report 8157112-9 (Version None)
Quarter: 2012Q1

REPORT INFORMATION
  Report Type: 
  Country: None (occurrence: None)
  Receive Date: 20120222
  Receipt Date: 20120207
  Transmission Date: 20120608
  Serious: Yes (Hospitalization)
  Sender: FDA-Public Use
  Company Number: US-ROCHE-1012255

PATIENT
  Sex: Female

DRUGS (4)
  1. HERCEPTIN [Suspect]
     Indication: PRODUCT USED FOR UNKNOWN INDICATION
     Dosage: LOADING DOSE
     Route: 042
     Dates: start: 20060207
  2. TARCEVA [Suspect]
     Indication: PRODUCT USED FOR UNKNOWN INDICATION
     Dosage: STARTING FROM DAY 3 OF CYCLE 1
     Route: 048
  3. HERCEPTIN [Suspect]
     Dosage: OVER 30 MIN ON DAY 1QW FOR 3 WEEKS, EVERY 28 DAYS
     Route: 042
  4. PACLITAXEL [Suspect]
     Indication: PRODUCT USED FOR UNKNOWN INDICATION
     Dosage: OVER 1HR ON DAY 1 EVERY WEEK FOR 3 WEEKS, EVERY 28 DAYS
     Route: 042
     Dates: start: 20060207

REACTIONS (1)
  - PNEUMOTHORAX [None]
